FAERS Safety Report 5901644-8 (Version None)
Quarter: 2008Q3

REPORT INFORMATION
  Report Type: 
  Country: None (occurrence: None)
  Receive Date: 20080929
  Receipt Date: 20080925
  Transmission Date: 20090109
  Serious: Yes (Disabling, Other)
  Sender: FDA-Public Use
  Company Number: US-MERCK-0808USA04243

PATIENT
  Age: 61 Year
  Sex: Male
  Weight: 78 kg

DRUGS (1)
  1. VYTORIN [Suspect]
     Indication: BLOOD CHOLESTEROL DECREASED
     Route: 048
     Dates: start: 20071105, end: 20080729

REACTIONS (5)
  - ARTHRALGIA [None]
  - DIPLOPIA [None]
  - MYALGIA [None]
  - MYASTHENIA GRAVIS [None]
  - ROTATOR CUFF SYNDROME [None]
